FAERS Safety Report 11804155 (Version 1)
Quarter: 2015Q4

REPORT INFORMATION
  Report Type: Spontaneous
  Country: US (occurrence: US)
  Receive Date: 20151204
  Receipt Date: 20151204
  Transmission Date: 20160305
  Serious: Yes (Other)
  Sender: FDA-Public Use
  Company Number: US-ENDO PHARMACEUTICALS INC.-2015-003705

PATIENT
  Sex: Male

DRUGS (2)
  1. TESTIM [Suspect]
     Active Substance: TESTOSTERONE
     Indication: ANDROGEN REPLACEMENT THERAPY
     Route: 062
     Dates: start: 200305, end: 201403
  2. ANDROGEL [Suspect]
     Active Substance: TESTOSTERONE
     Indication: ANDROGEN REPLACEMENT THERAPY
     Route: 065
     Dates: start: 200305, end: 201403

REACTIONS (1)
  - Myocardial infarction [Unknown]

NARRATIVE: CASE EVENT DATE: 201204
